FAERS Safety Report 4958814-5 (Version None)
Quarter: 2006Q1

REPORT INFORMATION
  Report Type: 
  Country: None (occurrence: None)
  Receive Date: 20060324
  Receipt Date: 20060316
  Transmission Date: 20060701
  Serious: Yes (Hospitalization, Other)
  Sender: FDA-Public Use
  Company Number: 2006-02-1076

PATIENT
  Age: 84 Year
  Sex: Male

DRUGS (4)
  1. FLUTAMIDE [Suspect]
     Indication: PROSTATE CANCER
     Dosage: 365 MG QD ORAL
     Route: 048
     Dates: start: 20050602, end: 20060201
  2. LEUPLIN INJECTABLE [Suspect]
     Indication: PROSTATE CANCER
     Dosage: 3.75-11.25MG* SUBCUTANEOUS
     Route: 058
     Dates: start: 20050808, end: 20060123
  3. LEUPLIN INJECTABLE [Suspect]
     Indication: PROSTATE CANCER
     Dosage: 3.75-11.25MG* SUBCUTANEOUS
     Route: 058
     Dates: start: 20050602, end: 20060201
  4. LEUPLIN INJECTABLE [Suspect]
     Indication: PROSTATE CANCER
     Dosage: 3.75-11.25MG* SUBCUTANEOUS
     Route: 058
     Dates: start: 20050602

REACTIONS (2)
  - INTERSTITIAL LUNG DISEASE [None]
  - PNEUMONITIS [None]
